FAERS Safety Report 20681655 (Version 1)
Quarter: 2022Q2

REPORT INFORMATION
  Report Type: Spontaneous
  Country: CN (occurrence: CN)
  Receive Date: 20220406
  Receipt Date: 20220406
  Transmission Date: 20220721
  Serious: Yes (Hospitalization)
  Sender: FDA-Public Use
  Company Number: CN-STRIDES ARCOLAB LIMITED-2022SP003553

PATIENT
  Age: 3 Year
  Sex: Male

DRUGS (14)
  1. ETOPOSIDE [Suspect]
     Active Substance: ETOPOSIDE
     Indication: Chronic active Epstein-Barr virus infection
     Dosage: 100 MILLIGRAM/SQ. METER (ON THE FIRST DAY OF EACH WEEK)
     Route: 065
  2. ETOPOSIDE [Suspect]
     Active Substance: ETOPOSIDE
     Dosage: 300 MILLIGRAM/SQ. METER PER DAY( CONDITIONING REGIMEN; ETOPOSIDE (VP16))
     Route: 065
  3. METHOTREXATE [Suspect]
     Active Substance: METHOTREXATE
     Indication: Prophylaxis against graft versus host disease
     Dosage: UNK
     Route: 065
  4. CYCLOSPORINE [Suspect]
     Active Substance: CYCLOSPORINE
     Indication: Prophylaxis against graft versus host disease
     Dosage: UNK
     Route: 065
  5. MYCOPHENOLATE MOFETIL [Suspect]
     Active Substance: MYCOPHENOLATE MOFETIL
     Indication: Prophylaxis against graft versus host disease
     Dosage: UNK
     Route: 065
  6. PEG/L-ASPARAGINASE [Suspect]
     Active Substance: PEGASPARGASE
     Indication: Chronic active Epstein-Barr virus infection
     Dosage: 2000 U/ME2 ON DAY 5
     Route: 065
  7. DOXORUBICIN HYDROCHLORIDE [Suspect]
     Active Substance: DOXORUBICIN HYDROCHLORIDE
     Indication: Chronic active Epstein-Barr virus infection
     Dosage: 25 MILLIGRAM/SQ. METER (ON DAY 1)
     Route: 065
  8. METHYLPREDNISOLONE [Suspect]
     Active Substance: METHYLPREDNISOLONE
     Indication: Chronic active Epstein-Barr virus infection
     Dosage: 15 MILLIGRAM/KILOGRAM PER DAY (ON DAYS 1-3)
     Route: 065
  9. METHYLPREDNISOLONE [Suspect]
     Active Substance: METHYLPREDNISOLONE
     Dosage: 2 MILLIGRAM/KILOGRAM PER DAY (ON DAYS 4-7)
     Route: 065
  10. METHYLPREDNISOLONE [Suspect]
     Active Substance: METHYLPREDNISOLONE
     Dosage: 1 MILLIGRAM/KILOGRAM PER DAY (ON DAYS 8-14 FOLLOWED BY GRADUAL TAPERING THE FOLLOWING WEEK)
     Route: 065
  11. FLUDARABINE [Suspect]
     Active Substance: FLUDARABINE PHOSPHATE
     Indication: Chronic active Epstein-Barr virus infection
     Dosage: 30 MILLIGRAM/SQ. METER PER DAY
     Route: 065
  12. CYCLOPHOSPHAMIDE [Suspect]
     Active Substance: CYCLOPHOSPHAMIDE
     Indication: Chronic active Epstein-Barr virus infection
     Dosage: 30 MILLIGRAM/KILOGRAM PER DAY (CONDITIONING REGIMEN)
     Route: 065
  13. THYMOCYTE IMMUNE GLOBULIN NOS [Suspect]
     Active Substance: THYMOCYTE IMMUNE GLOBULIN NOS
     Indication: Chronic active Epstein-Barr virus infection
     Dosage: 2.5 MILLIGRAM/KILOGRAM (CONDITIONING REGIMEN)
     Route: 065
  14. BUSULFAN [Suspect]
     Active Substance: BUSULFAN
     Indication: Chronic active Epstein-Barr virus infection
     Dosage: 0.8-1.2 MG/KG (CONDITIONING REGIMEN)
     Route: 065

REACTIONS (2)
  - Thrombotic microangiopathy [Unknown]
  - Off label use [Unknown]
